FAERS Safety Report 23592649 (Version 1)
Quarter: 2024Q1

REPORT INFORMATION
  Report Type: Spontaneous
  Country: ES (occurrence: ES)
  Receive Date: 20240304
  Receipt Date: 20240304
  Transmission Date: 20240410
  Serious: Yes (Other)
  Sender: FDA-Public Use
  Company Number: None

PATIENT
  Age: 29 Year
  Sex: Male

DRUGS (5)
  1. AZITHROMYCIN [Suspect]
     Active Substance: AZITHROMYCIN
     Indication: Prophylaxis
     Dosage: TIME INTERVAL: TOTAL: 1 GRAM/ (7019A)
     Route: 048
     Dates: start: 20231221, end: 20231221
  2. GEMFIBROZIL [Concomitant]
     Active Substance: GEMFIBROZIL
     Indication: Hypertriglyceridaemia
     Dosage: 600 MG PER DAY/ (637A)
     Route: 048
     Dates: start: 20231107
  3. CEFTRIAXONE [Suspect]
     Active Substance: CEFTRIAXONE\CEFTRIAXONE SODIUM
     Indication: Prophylaxis
     Dosage: TIME INTERVAL: TOTAL: 1 GRAM/ 1,000 MG INJECTABLE IM
     Route: 030
     Dates: start: 20231221, end: 20231221
  4. TRUVADA [Suspect]
     Active Substance: EMTRICITABINE\TENOFOVIR DISOPROXIL FUMARATE
     Indication: Prophylaxis against HIV infection
     Dosage: TIME INTERVAL: TOTAL: 1 DOSE/ 200 MG/245 MG TABLETS RECOVERED WITH PELICULA, 30 TABLETS
     Route: 048
     Dates: start: 20231221, end: 20231221
  5. ISENTRESS [Suspect]
     Active Substance: RALTEGRAVIR POTASSIUM
     Indication: Prophylaxis against HIV infection
     Dosage: 1 DOSE (NO SPECIFIC DOSAGE)
     Route: 048
     Dates: start: 20231221, end: 20231221

REACTIONS (2)
  - Face oedema [Recovered/Resolved]
  - Rash [Recovered/Resolved]

NARRATIVE: CASE EVENT DATE: 20231221
